FAERS Safety Report 13620019 (Version 3)
Quarter: 2017Q3

REPORT INFORMATION
  Report Type: Spontaneous
  Country: US (occurrence: US)
  Receive Date: 20170607
  Receipt Date: 20170717
  Transmission Date: 20171127
  Serious: No
  Sender: FDA-Public Use
  Company Number: US-TEVA-775964ACC

PATIENT
  Age: 20 Year
  Sex: Female
  Weight: 58.57 kg

DRUGS (1)
  1. PARAGARD T 380A [Suspect]
     Active Substance: COPPER
     Indication: CONTRACEPTION
     Dates: start: 20170217, end: 20170516

REACTIONS (6)
  - Muscle spasms [Unknown]
  - Pelvic pain [Unknown]
  - Embedded device [Unknown]
  - Menorrhagia [Unknown]
  - Device breakage [Recovered/Resolved]
  - Complication associated with device [Unknown]

NARRATIVE: CASE EVENT DATE: 20170217
